FAERS Safety Report 14375926 (Version 1)
Quarter: 2018Q1

REPORT INFORMATION
  Report Type: Spontaneous
  Country: US (occurrence: US)
  Receive Date: 20180110
  Receipt Date: 20180110
  Transmission Date: 20180509
  Serious: Yes (Disabling)
  Sender: FDA-Public Use
  Company Number: None

PATIENT
  Age: 47 Year
  Sex: Female
  Weight: 51.71 kg

DRUGS (3)
  1. DEBLITANE [Suspect]
     Active Substance: NORETHINDRONE
     Indication: MENOPAUSAL SYMPTOMS
     Dosage: FREQUENCY - 1 PER DAY
     Route: 048
     Dates: start: 20171010, end: 201712
  2. MELOXICAM. [Concomitant]
     Active Substance: MELOXICAM
  3. DEBLITANE [Suspect]
     Active Substance: NORETHINDRONE
     Indication: MENSTRUAL DISORDER
     Dosage: FREQUENCY - 1 PER DAY
     Route: 048
     Dates: start: 20171010, end: 201712

REACTIONS (3)
  - Menorrhagia [None]
  - Tendonitis [None]
  - Pain in extremity [None]

NARRATIVE: CASE EVENT DATE: 201712
